FAERS Safety Report 4911622-3 (Version None)
Quarter: 2006Q1

REPORT INFORMATION
  Report Type: 
  Country: None (occurrence: None)
  Receive Date: 20060213
  Receipt Date: 20060202
  Transmission Date: 20060701
  Serious: Yes (Hospitalization)
  Sender: FDA-Public Use
  Company Number: HQWYE693807FEB06

PATIENT
  Age: 67 Year
  Sex: Male

DRUGS (9)
  1. RAPAMUNE [Suspect]
     Indication: PROPHYLAXIS AGAINST TRANSPLANT REJECTION
     Dosage: ORAL
     Route: 048
     Dates: start: 20040126, end: 20060112
  2. LANTUS [Concomitant]
  3. LIPITOR [Concomitant]
  4. COREG [Concomitant]
  5. PERCOCET [Concomitant]
  6. PREDNISONE (PREDISONE) [Concomitant]
  7. ELAVIL [Concomitant]
  8. ASPIRIN [Concomitant]
  9. IRON (IRON) [Concomitant]

REACTIONS (15)
  - BLOOD CREATININE INCREASED [None]
  - BLOOD GLUCOSE INCREASED [None]
  - BLOOD UREA INCREASED [None]
  - BLOOD URIC ACID INCREASED [None]
  - CARDIOMEGALY [None]
  - CHEST PAIN [None]
  - DYSPNOEA [None]
  - FEELING HOT [None]
  - HAEMATOCRIT DECREASED [None]
  - LEG AMPUTATION [None]
  - LUNG INFILTRATION [None]
  - PNEUMONIA [None]
  - PULMONARY CONGESTION [None]
  - SNEEZING [None]
  - TROPONIN INCREASED [None]
